FAERS Safety Report 8346089-9 (Version None)
Quarter: 2012Q2

REPORT INFORMATION
  Report Type: 
  Country: None (occurrence: None)
  Receive Date: 20120509
  Receipt Date: 20110713
  Transmission Date: 20120825
  Serious: No
  Sender: FDA-Public Use
  Company Number: US-MYLANLABS-2011S1014541

PATIENT
  Sex: Female

DRUGS (6)
  1. FISH OIL [Concomitant]
     Route: 048
  2. HYDROCHLOROTHIAZIDE [Suspect]
     Indication: FLUID RETENTION
     Dates: start: 20110101, end: 20110101
  3. ANAGRELIDE HYDROCHLORIDE [Interacting]
     Indication: PLATELET COUNT INCREASED
     Route: 048
     Dates: start: 20080101
  4. VITAMIN D [Concomitant]
     Route: 048
  5. PLAVIX [Concomitant]
     Route: 048
  6. HYDROXYUREA [Suspect]

REACTIONS (5)
  - BLOOD PRESSURE INCREASED [None]
  - DEHYDRATION [None]
  - VISUAL IMPAIRMENT [None]
  - DRUG INTERACTION [None]
  - SYNCOPE [None]
